FAERS Safety Report 6164188-7 (Version None)
Quarter: 2009Q2

REPORT INFORMATION
  Report Type: 
  Country: None (occurrence: None)
  Receive Date: 20090420
  Receipt Date: 20090402
  Transmission Date: 20091009
  Serious: No
  Sender: FDA-Public Use
  Company Number: GR-2009-0744

PATIENT
  Age: 67 Year
  Sex: Male

DRUGS (4)
  1. VINORELBINE [Suspect]
     Indication: LUNG ADENOCARCINOMA
  2. TOPOTECAN (TOPOTECAN) [Suspect]
     Indication: LUNG ADENOCARCINOMA
  3. CISPLATIN [Suspect]
     Indication: LUNG ADENOCARCINOMA
  4. DOCETAXEL [Suspect]
     Indication: LUNG ADENOCARCINOMA

REACTIONS (2)
  - METASTASES TO LUNG [None]
  - MULTIPLE MYELOMA [None]
